FAERS Safety Report 20423374 (Version 1)
Quarter: 2022Q1

REPORT INFORMATION
  Report Type: Spontaneous
  Country: US (occurrence: US)
  Receive Date: 20220203
  Receipt Date: 20220203
  Transmission Date: 20220423
  Serious: Yes (Other)
  Sender: FDA-Public Use
  Company Number: US-SA-SAC20220128001474

PATIENT
  Age: 20 Year
  Sex: Female

DRUGS (1)
  1. ZANTAC [Suspect]
     Active Substance: RANITIDINE HYDROCHLORIDE
     Indication: Gastric ulcer
     Dosage: 150 MG, QD
     Dates: start: 198001, end: 201801

REACTIONS (3)
  - Uterine cancer [Unknown]
  - Breast cancer recurrent [Not Recovered/Not Resolved]
  - Cervix carcinoma stage I [Unknown]

NARRATIVE: CASE EVENT DATE: 19850101
